FAERS Safety Report 6735254-X (Version None)
Quarter: 2010Q2

REPORT INFORMATION
  Report Type: 
  Country: None (occurrence: None)
  Receive Date: 20100521
  Receipt Date: 20100518
  Transmission Date: 20101027
  Serious: Yes (Hospitalization)
  Sender: FDA-Public Use
  Company Number: FR-WYE-G06143310

PATIENT
  Sex: Male

DRUGS (4)
  1. TAZOCILLINE [Suspect]
     Indication: INFECTION
     Dosage: UNKNOWN
     Route: 042
     Dates: start: 20091223, end: 20100112
  2. HALDOL [Suspect]
     Indication: SEDATION
     Route: 042
     Dates: start: 20100107, end: 20100112
  3. NOREPINEPHRINE [Suspect]
     Indication: HYPOTENSION
     Dosage: UNKNOWN
     Route: 042
     Dates: start: 20091229, end: 20100105
  4. NEXIUM [Suspect]
     Indication: PROPHYLAXIS AGAINST GASTROINTESTINAL ULCER
     Route: 042
     Dates: start: 20100105, end: 20100112

REACTIONS (8)
  - AGRANULOCYTOSIS [None]
  - CYTOLYTIC HEPATITIS [None]
  - PROTEUS INFECTION [None]
  - PULMONARY ARTERIAL HYPERTENSION [None]
  - RENAL FAILURE [None]
  - RESPIRATORY DISORDER [None]
  - RIGHT VENTRICULAR FAILURE [None]
  - URINARY TRACT INFECTION BACTERIAL [None]
